FAERS Safety Report 9547019 (Version 1)
Quarter: 2013Q3

REPORT INFORMATION
  Report Type: Spontaneous
  Country: US (occurrence: None)
  Receive Date: 20130920
  Receipt Date: 20130920
  Transmission Date: 20140515
  Serious: Yes (Hospitalization)
  Sender: FDA-Public Use
  Company Number: 151297

PATIENT
  Age: 42 Year
  Sex: Female

DRUGS (2)
  1. CISPLATIN INJ. 50MG/50ML -BEDFORD LABS, INC [Suspect]
     Indication: ADENOID CYSTIC CARCINOMA
     Dosage: UNKNOWN, UNKNOWN, UNKNOWN
  2. ADRIAMYCIN (DOXORUBICIN) INJ. USP 10MG/5ML [Suspect]
     Indication: ADENOID CYSTIC CARCINOMA

REACTIONS (2)
  - Intermittent claudication [None]
  - Facial paresis [None]
